FAERS Safety Report 8266672-9 (Version None)
Quarter: 2012Q2

REPORT INFORMATION
  Report Type: 
  Country: None (occurrence: None)
  Receive Date: 20120408
  Receipt Date: 20120329
  Transmission Date: 20120825
  Serious: Yes (Other)
  Sender: FDA-Public Use
  Company Number: JP-VERTEX PHARMACEUTICALS INC.-AE-2012-004720

PATIENT
  Age: 60 Year
  Sex: Female

DRUGS (11)
  1. TELAVIC (TELAPREVIR) [Suspect]
     Indication: HEPATITIS C
     Route: 048
     Dates: start: 20111216
  2. REBETOL [Concomitant]
     Indication: HEPATITIS C
     Route: 048
     Dates: start: 20111216, end: 20111230
  3. REBETOL [Concomitant]
     Dates: start: 20111230, end: 20120127
  4. XYZAL [Concomitant]
  5. SELBEX [Concomitant]
  6. REBETOL [Concomitant]
     Dates: start: 20120127
  7. PEGINTERFERON [Concomitant]
     Dates: start: 20111223
  8. EVISTA [Concomitant]
  9. THYROID AND PARATHYROID PREPARATIONS [Concomitant]
  10. VIVIANT [Concomitant]
  11. PEGINTERFERON [Concomitant]
     Indication: HEPATITIS C
     Route: 058
     Dates: start: 20111216, end: 20111223

REACTIONS (1)
  - NEUTROPHIL COUNT DECREASED [None]
